FAERS Safety Report 4884455-4 (Version None)
Quarter: 2006Q1

REPORT INFORMATION
  Report Type: 
  Country: None (occurrence: None)
  Receive Date: 20060117
  Receipt Date: 20060103
  Transmission Date: 20060701
  Serious: Yes (Hospitalization, Disabling, Other)
  Sender: FDA-Public Use
  Company Number: HQWYE244728JUL03

PATIENT
  Age: 52 Year
  Sex: Female
  Weight: 53.12 kg

DRUGS (1)
  1. PREMPRO [Suspect]
     Dosage: 0.625 MG/2.5MG DAILY, ORAL
     Route: 048
     Dates: start: 19991023, end: 20010731

REACTIONS (3)
  - BREAST CANCER METASTATIC [None]
  - FIBROCYSTIC BREAST DISEASE [None]
  - METASTASES TO LYMPH NODES [None]
